FAERS Safety Report 5649223-4 (Version None)
Quarter: 2008Q1

REPORT INFORMATION
  Report Type: 
  Country: None (occurrence: None)
  Receive Date: 20080304
  Receipt Date: 20071203
  Transmission Date: 20080703
  Serious: No
  Sender: FDA-Public Use
  Company Number: US-BAYER-200715858NA

PATIENT
  Age: 59 Year
  Sex: Male
  Weight: 79 kg

DRUGS (2)
  1. ULTRAVIST 300 [Suspect]
     Indication: COMPUTERISED TOMOGRAM
     Dosage: TOTAL DAILY DOSE: 95 ML  UNIT DOSE: 95 ML
     Route: 042
     Dates: start: 20071130, end: 20071130
  2. READICAT [Concomitant]
     Route: 048
     Dates: start: 20071130, end: 20071130

REACTIONS (5)
  - EYE PRURITUS [None]
  - LACRIMATION INCREASED [None]
  - PHARYNGOLARYNGEAL DISCOMFORT [None]
  - SNEEZING [None]
  - URTICARIA [None]
